FAERS Safety Report 21925201 (Version 4)
Quarter: 2024Q4

REPORT INFORMATION
  Report Type: Spontaneous
  Country: FR (occurrence: FR)
  Receive Date: 20230130
  Receipt Date: 20241026
  Transmission Date: 20250115
  Serious: Yes (Other)
  Sender: AUROBINDO
  Company Number: FR-PFIZER INC-202300021919

PATIENT
  Age: 80 Year
  Sex: Male

DRUGS (17)
  1. FOLIC ACID [Suspect]
     Active Substance: FOLIC ACID
     Indication: Adenocarcinoma of colon
     Dosage: 200 MILLIGRAM/SQ. METER, DAILY (200 MG/M2 /DAY) FOR 5 DAYS EVERY 4 WEEKS
     Route: 040
     Dates: start: 199909, end: 200002
  2. FOLIC ACID [Suspect]
     Active Substance: FOLIC ACID
     Dosage: 200 MILLIGRAM/SQ. METER, DAILY OVER 90 MIN
     Route: 040
     Dates: start: 200004
  3. IRINOTECAN [Suspect]
     Active Substance: IRINOTECAN
     Indication: Adenocarcinoma of colon
     Dosage: UNK UNK, CYCLICAL (1 CYCLE)
     Route: 065
  4. IRINOTECAN [Suspect]
     Active Substance: IRINOTECAN
     Dosage: 180 MG/M2, CYCLICAL
     Route: 040
     Dates: start: 2000
  5. PREDNISONE [Suspect]
     Active Substance: PREDNISONE
     Indication: Prophylaxis
     Dosage: UNK
     Route: 065
  6. ONDANSETRON [Suspect]
     Active Substance: ONDANSETRON
     Indication: Prophylaxis
     Dosage: UNK
     Route: 065
  7. LEUCOVORIN CALCIUM [Suspect]
     Active Substance: LEUCOVORIN CALCIUM
     Indication: Adenocarcinoma of colon
     Dosage: UNK, CYCLICAL  (1 CYCLE)
     Route: 042
  8. LEUCOVORIN CALCIUM [Suspect]
     Active Substance: LEUCOVORIN CALCIUM
     Dosage: UNK, CYCLICAL (6 CYCLE)
     Route: 065
  9. LEUCOVORIN CALCIUM [Suspect]
     Active Substance: LEUCOVORIN CALCIUM
     Dosage: 200 MG/M2, CYCLICAL (200 MG/M2/DAY) FOR 5 DAYS EVERY 4 WEEKS)
     Route: 042
     Dates: start: 199909, end: 200002
  10. LEUCOVORIN CALCIUM [Suspect]
     Active Substance: LEUCOVORIN CALCIUM
     Dosage: 200 MG/M2, CYCLICAL
     Route: 042
     Dates: start: 2000, end: 2000
  11. FLUOROURACIL [Suspect]
     Active Substance: FLUOROURACIL
     Indication: Adenocarcinoma of colon
     Dosage: UNK, CYCLICAL (1 CYCLE)
     Route: 065
  12. FLUOROURACIL [Suspect]
     Active Substance: FLUOROURACIL
     Dosage: UNK, CYCLICAL (6 CYCLE)
     Route: 065
  13. FLUOROURACIL [Suspect]
     Active Substance: FLUOROURACIL
     Dosage: 400 MG/M2, CYCLICAL (FOR 5 DAYS EVERY 4 WEEKS) (BOLUS) FOR 5 DAYS EVERY 4 WEEKS
     Route: 040
     Dates: start: 199909, end: 200002
  14. FLUOROURACIL [Suspect]
     Active Substance: FLUOROURACIL
     Dosage: 2400 MG/M2, CYCLICAL
     Route: 065
     Dates: start: 2000
  15. FLUOROURACIL [Suspect]
     Active Substance: FLUOROURACIL
     Dosage: 400 MG/M2, CYCLICAL
     Route: 042
     Dates: start: 200004
  16. METOCLOPRAMIDE [Suspect]
     Active Substance: METOCLOPRAMIDE
     Indication: Prophylaxis
     Dosage: UNK
     Route: 065
  17. ATROPINE [Concomitant]
     Active Substance: ATROPINE
     Indication: Prophylaxis
     Dosage: UNK
     Route: 065

REACTIONS (4)
  - Urticaria [Unknown]
  - Hypotension [Unknown]
  - Anaphylactic shock [Recovered/Resolved]
  - Hypersensitivity [Recovered/Resolved]
